FAERS Safety Report 12561216 (Version 3)
Quarter: 2016Q3

REPORT INFORMATION
  Report Type: Spontaneous
  Country: US (occurrence: US)
  Receive Date: 20160715
  Receipt Date: 20160808
  Transmission Date: 20161109
  Serious: No
  Sender: FDA-Public Use
  Company Number: US-BEH-2016062206

PATIENT
  Sex: Female
  Weight: 78 kg

DRUGS (20)
  1. DYMISTA [Concomitant]
     Active Substance: AZELASTINE HYDROCHLORIDE\FLUTICASONE PROPIONATE
  2. PROVENTIL [Concomitant]
     Active Substance: ALBUTEROL
  3. DIPHENHYDRAMINE. [Concomitant]
     Active Substance: DIPHENHYDRAMINE
  4. IPRATROPIUM [Concomitant]
     Active Substance: IPRATROPIUM
  5. HIZENTRA [Suspect]
     Active Substance: HUMAN IMMUNOGLOBULIN G
     Indication: SELECTIVE IGG SUBCLASS DEFICIENCY
     Route: 058
     Dates: start: 20151214
  6. SINGULAIR [Concomitant]
     Active Substance: MONTELUKAST SODIUM
  7. AZELASTINE [Concomitant]
     Active Substance: AZELASTINE
  8. LEXAPRO [Concomitant]
     Active Substance: ESCITALOPRAM OXALATE
  9. MULTIVITAMIN [Concomitant]
     Active Substance: VITAMINS
  10. LOSARTAN. [Concomitant]
     Active Substance: LOSARTAN
  11. ALLEGRA [Concomitant]
     Active Substance: FEXOFENADINE HYDROCHLORIDE
  12. EPIPEN [Concomitant]
     Active Substance: EPINEPHRINE
  13. WELLBUTRIN [Concomitant]
     Active Substance: BUPROPION HYDROCHLORIDE
  14. ALVESCO [Concomitant]
     Active Substance: CICLESONIDE
  15. LIDOCAINE. [Concomitant]
     Active Substance: LIDOCAINE
  16. PRAVASTATIN. [Concomitant]
     Active Substance: PRAVASTATIN
  17. VITAMIN D [Concomitant]
     Active Substance: CHOLECALCIFEROL
  18. ACETAMINOPHEN. [Concomitant]
     Active Substance: ACETAMINOPHEN
  19. PROBIOTIC [Concomitant]
     Active Substance: PROBIOTICS NOS
  20. PREVACID [Concomitant]
     Active Substance: LANSOPRAZOLE

REACTIONS (2)
  - Heart rate irregular [Unknown]
  - Tachycardia [Unknown]
